FAERS Safety Report 20022206 (Version 1)
Quarter: 2021Q4

REPORT INFORMATION
  Report Type: Report from Study
  Country: IT (occurrence: None)
  Receive Date: 20211102
  Receipt Date: 20211102
  Transmission Date: 20220303
  Serious: Yes (Hospitalization)
  Sender: FDA-Public Use
  Company Number: IT-ROCHE-2943687

PATIENT
  Age: 45 Year
  Sex: Female
  Weight: 64 kg

DRUGS (3)
  1. ATEZOLIZUMAB [Suspect]
     Active Substance: ATEZOLIZUMAB
     Indication: Breast cancer
     Route: 042
     Dates: start: 20200927, end: 20210903
  2. PERTUZUMAB [Suspect]
     Active Substance: PERTUZUMAB
     Indication: Breast cancer
     Dosage: ON 15/OCT/2021, LAST DOSE OF PERTUZUMAB BEFORE SAE WAS ADMINISTERED.
     Route: 042
     Dates: start: 20210212
  3. TRASTUZUMAB [Suspect]
     Active Substance: TRASTUZUMAB
     Indication: Breast cancer
     Dosage: ON 15/OCT/2021, LAST DOSE OF TRASTUZUMAB BEFORE SAE WAS ADMINISTERED.
     Route: 041
     Dates: start: 20210212

REACTIONS (1)
  - Transaminases increased [Not Recovered/Not Resolved]

NARRATIVE: CASE EVENT DATE: 20211022
